FAERS Safety Report 5442082-4 (Version None)
Quarter: 2007Q3

REPORT INFORMATION
  Report Type: 
  Country: None (occurrence: None)
  Receive Date: 20070829
  Receipt Date: 20070820
  Transmission Date: 20080115
  Serious: Yes (Other)
  Sender: FDA-Public Use
  Company Number: 2007-039

PATIENT

DRUGS (1)
  1. PHYTONADIONE [Suspect]
     Indication: HAEMORRHAGE PROPHYLAXIS
     Dosage: 1 MG, 1X, 1M

REACTIONS (2)
  - ACCIDENTAL NEEDLE STICK [None]
  - DEVICE MALFUNCTION [None]
